FAERS Safety Report 14403327 (Version 1)
Quarter: 2018Q1

REPORT INFORMATION
  Report Type: Spontaneous
  Country: SE (occurrence: SE)
  Receive Date: 20180117
  Receipt Date: 20180117
  Transmission Date: 20180509
  Serious: Yes (Other)
  Sender: FDA-Public Use
  Company Number: SE-MYLANLABS-2018M1003154

PATIENT
  Age: 25 Year
  Sex: Female

DRUGS (1)
  1. VALACICLOVIR [Suspect]
     Active Substance: VALACYCLOVIR HYDROCHLORIDE
     Indication: PRODUCT USED FOR UNKNOWN INDICATION
     Dosage: UNK

REACTIONS (4)
  - Oral pruritus [Recovered/Resolved]
  - Tonsillar hypertrophy [Recovered/Resolved]
  - Peritonsillitis [Recovered/Resolved]
  - Laryngeal discomfort [Recovered/Resolved]
